APPROVED DRUG PRODUCT: DIPYRIDAMOLE
Active Ingredient: DIPYRIDAMOLE
Strength: 75MG
Dosage Form/Route: TABLET;ORAL
Application: A089001 | Product #001
Applicant: GLENMARK GENERICS INC USA
Approved: Feb 5, 1991 | RLD: No | RS: No | Type: DISCN